FAERS Safety Report 5109588-9 (Version None)
Quarter: 2006Q3

REPORT INFORMATION
  Report Type: 
  Country: None (occurrence: None)
  Receive Date: 20060918
  Receipt Date: 20060901
  Transmission Date: 20061208
  Serious: Yes (Hospitalization)
  Sender: FDA-Public Use
  Company Number: ES200609000413

PATIENT
  Age: 81 Year
  Sex: Female

DRUGS (2)
  1. FORTEO [Suspect]
     Indication: OSTEOPOROSIS
     Dosage: 20 U, DAILY (1/D), SUBCUTANEOUS
     Route: 058
     Dates: start: 20060628, end: 20060823
  2. INSULIN (INSULIN) [Concomitant]

REACTIONS (1)
  - HYPOGLYCAEMIA [None]
